FAERS Safety Report 10429637 (Version 1)
Quarter: 2014Q3

REPORT INFORMATION
  Report Type: Not Available
  Country: US (occurrence: US)
  Receive Date: 20140904
  Receipt Date: 20140904
  Transmission Date: 20150326
  Serious: No
  Sender: FDA-Public Use
  Company Number: US-LUPIN PHARMACEUTICALS INC.-E2B_00002265

PATIENT
  Sex: Female

DRUGS (4)
  1. AMLODIPINE BESYLATE TABLETS 2.5 MG (AMLODIPINE) [Suspect]
     Active Substance: AMLODIPINE BESYLATE
     Indication: BLOOD CHOLESTEROL INCREASED
  2. METFORMIN [Concomitant]
     Active Substance: METFORMIN HYDROCHLORIDE
     Indication: DIABETES MELLITUS
     Route: 065
  3. AMLODIPINE BESYLATE TABLETS 2.5 MG (AMLODIPINE) [Suspect]
     Active Substance: AMLODIPINE BESYLATE
  4. AMLODIPINE BESYLATE TABLETS 5 MG [Suspect]
     Active Substance: AMLODIPINE BESYLATE
     Indication: BLOOD CHOLESTEROL
     Dates: end: 20140630

REACTIONS (4)
  - Off label use [Unknown]
  - Vein disorder [Unknown]
  - Blood glucose decreased [Unknown]
  - Blood cholesterol increased [Unknown]
